FAERS Safety Report 5387823-X (Version None)
Quarter: 2007Q3

REPORT INFORMATION
  Report Type: 
  Country: None (occurrence: None)
  Receive Date: 20070716
  Receipt Date: 20060630
  Transmission Date: 20080115
  Serious: No
  Sender: FDA-Public Use
  Company Number: A0610752A

PATIENT
  Age: 41 Year
  Sex: Female

DRUGS (2)
  1. NICORETTE [Suspect]
  2. NICORETTE [Suspect]

REACTIONS (3)
  - HEART RATE INCREASED [None]
  - NICOTINE DEPENDENCE [None]
  - PALPITATIONS [None]
